FAERS Safety Report 6088101-6 (Version None)
Quarter: 2009Q1

REPORT INFORMATION
  Report Type: 
  Country: None (occurrence: None)
  Receive Date: 20090218
  Receipt Date: 20090202
  Transmission Date: 20090719
  Serious: Yes (Other)
  Sender: FDA-Public Use
  Company Number: 8042486

PATIENT
  Age: 8 Year
  Sex: Female

DRUGS (1)
  1. LEVOCETIRIZINE [Suspect]

REACTIONS (1)
  - SYNCOPE [None]
